FAERS Safety Report 8030379-3 (Version None)
Quarter: 2012Q1

REPORT INFORMATION
  Report Type: 
  Country: None (occurrence: None)
  Receive Date: 20120109
  Receipt Date: 20120109
  Transmission Date: 20120608
  Serious: Yes (Disabling)
  Sender: FDA-Public Use
  Company Number: None

PATIENT
  Sex: Female
  Weight: 79.378 kg

DRUGS (2)
  1. DOXORUBICIN HCL [Suspect]
     Indication: BREAST CANCER
     Dosage: 112MG
     Route: 040
     Dates: start: 20111122, end: 20111220
  2. CYCLOPHOSPHAMIDE [Concomitant]
     Dosage: 1120MG
     Route: 041
     Dates: start: 20111122, end: 20111220

REACTIONS (3)
  - BURNING SENSATION [None]
  - OEDEMA PERIPHERAL [None]
  - NEURALGIA [None]
